FAERS Safety Report 9410509 (Version 1)
Quarter: 2013Q3

REPORT INFORMATION
  Report Type: Spontaneous
  Country: US (occurrence: None)
  Receive Date: 20130718
  Receipt Date: 20130718
  Transmission Date: 20140515
  Serious: Yes (Hospitalization)
  Sender: FDA-Public Use
  Company Number: None

PATIENT
  Age: 58 Year
  Sex: Female
  Weight: 85.28 kg

DRUGS (1)
  1. XARELTO [Suspect]
     Indication: ATRIAL FIBRILLATION
     Dosage: 1, PER DAY, PO
     Route: 048
     Dates: start: 20130629, end: 20130708

REACTIONS (3)
  - Abdominal pain [None]
  - Blood urine [None]
  - Haemorrhage [None]
